FAERS Safety Report 7551454-3 (Version None)
Quarter: 2011Q2

REPORT INFORMATION
  Report Type: 
  Country: None (occurrence: None)
  Receive Date: 20110616
  Receipt Date: 20110609
  Transmission Date: 20111010
  Serious: Yes (Hospitalization)
  Sender: FDA-Public Use
  Company Number: DE-ROCHE-781801

PATIENT
  Sex: Male

DRUGS (6)
  1. RIBAVIRIN [Suspect]
     Route: 048
     Dates: start: 20110125
  2. BLINDED BMS-790052 (HCV NS5A INHIBITOR) [Suspect]
     Indication: HEPATITIS C
     Route: 048
     Dates: start: 20101206
  3. RAMIPRIL [Concomitant]
     Dates: start: 20101129
  4. VOMEX A [Concomitant]
     Dates: start: 20110128, end: 20110202
  5. RIBAVIRIN [Suspect]
     Indication: HEPATITIS C
     Route: 048
     Dates: start: 20101206
  6. PEGINTERFERON ALFA-2A [Suspect]
     Indication: HEPATITIS C
     Route: 058
     Dates: start: 20101206

REACTIONS (1)
  - VERTIGO [None]
